FAERS Safety Report 9419568 (Version 1)
Quarter: 2013Q3

REPORT INFORMATION
  Report Type: Spontaneous
  Country: US (occurrence: US)
  Receive Date: 20130725
  Receipt Date: 20130725
  Transmission Date: 20140515
  Serious: No
  Sender: FDA-Public Use
  Company Number: US-BAXTER-2013BAX022966

PATIENT
  Age: 53 Year
  Sex: Male
  Weight: 98.5 kg

DRUGS (1)
  1. POTASSIUM CHLORIDE IN SODIUM CHLORIDE [Suspect]
     Indication: MINERAL SUPPLEMENTATION
     Dosage: 10 MEQ/100 ML
     Route: 042
     Dates: start: 20130615, end: 20130615

REACTIONS (3)
  - Infusion site pain [Unknown]
  - Vein disorder [Unknown]
  - Discomfort [Unknown]
